FAERS Safety Report 6881436-6 (Version None)
Quarter: 2010Q3

REPORT INFORMATION
  Report Type: 
  Country: None (occurrence: None)
  Receive Date: 20100728
  Receipt Date: 20100728
  Transmission Date: 20110219
  Serious: Yes (Hospitalization)
  Sender: FDA-Public Use
  Company Number: None

PATIENT
  Age: 58 Year
  Sex: Female

DRUGS (8)
  1. WARFARIN SODIUM [Suspect]
     Indication: ATRIAL THROMBOSIS
     Dosage: 3.5MG DAILY PO
     Route: 048
     Dates: start: 20090303, end: 20090309
  2. PLAVIX [Concomitant]
  3. ASPIRIN [Concomitant]
  4. LISINOPRIL [Concomitant]
  5. SERTRALINE HCL [Concomitant]
  6. TOPROL-XL [Concomitant]
  7. SIMVASTATIN [Concomitant]
  8. PRILOSEC [Concomitant]

REACTIONS (8)
  - ACROCHORDON [None]
  - DIVERTICULUM [None]
  - DIZZINESS [None]
  - EMBOLISM ARTERIAL [None]
  - HAEMATEMESIS [None]
  - HAEMORRHOIDS [None]
  - INTERNATIONAL NORMALISED RATIO INCREASED [None]
  - MELAENA [None]
